FAERS Safety Report 16312761 (Version 4)
Quarter: 2022Q4

REPORT INFORMATION
  Report Type: Other
  Country: US (occurrence: None)
  Receive Date: 20190515
  Receipt Date: 20221019
  Transmission Date: 20230112
  Serious: Yes (Other)
  Sender: FDA-Public Use
  Company Number: US-ROCHE-2315480

PATIENT
  Age: 67 Year
  Sex: Female

DRUGS (4)
  1. CAPECITABINE [Suspect]
     Active Substance: CAPECITABINE
     Indication: Adenocarcinoma gastric
     Dosage: FOR 14 DAYS
     Route: 065
  2. FOLATE SODIUM [Suspect]
     Active Substance: FOLATE SODIUM
     Indication: Product used for unknown indication
     Route: 065
  3. CARBOPLATIN [Concomitant]
     Active Substance: CARBOPLATIN
  4. LACTULOSE [Concomitant]
     Active Substance: LACTULOSE

REACTIONS (3)
  - Hepatic steatosis [Unknown]
  - Hyperammonaemia [Recovering/Resolving]
  - Encephalopathy [Unknown]
